FAERS Safety Report 13491094 (Version 2)
Quarter: 2017Q2

REPORT INFORMATION
  Report Type: Spontaneous
  Country: JP (occurrence: JP)
  Receive Date: 20170427
  Receipt Date: 20170622
  Transmission Date: 20170830
  Serious: Yes (Hospitalization, Other)
  Sender: FDA-Public Use
  Company Number: JP-AMGEN-JPNSP2017063814

PATIENT
  Age: 75 Year
  Sex: Male
  Weight: 67.4 kg

DRUGS (9)
  1. ENBREL [Suspect]
     Active Substance: ETANERCEPT
     Indication: INFLAMMATION
     Dosage: 25 MG, WEEKLY
     Route: 058
     Dates: start: 20151006, end: 20160119
  2. PREDNISOLONE. [Concomitant]
     Active Substance: PREDNISOLONE
     Dosage: 9 MG, UNK
  3. IMURAN [Suspect]
     Active Substance: AZATHIOPRINE
     Indication: INFLAMMATION
     Dosage: 25 TO 50 MG, ONCE OR TWICE WEEKLY
     Route: 048
     Dates: start: 20150814, end: 20150924
  4. BONALON [Concomitant]
     Active Substance: ALENDRONATE SODIUM
     Dosage: UNK
  5. BAKTAR [Concomitant]
     Active Substance: SULFAMETHOXAZOLE\TRIMETHOPRIM
     Indication: PROPHYLAXIS
     Dosage: UNK
  6. MAGNESIUM OXIDE. [Concomitant]
     Active Substance: MAGNESIUM OXIDE
     Dosage: UNK
  7. RHEUMATREX [Suspect]
     Active Substance: METHOTREXATE SODIUM
     Indication: INFLAMMATION
     Dosage: 2 MG, 2X/WEEK
     Route: 048
     Dates: start: 20150724, end: 20150807
  8. RABEPRAZOLE [Concomitant]
     Active Substance: RABEPRAZOLE
     Dosage: UNK
  9. PREDNISOLONE. [Concomitant]
     Active Substance: PREDNISOLONE
     Dosage: 15 MG, UNK

REACTIONS (4)
  - Diffuse large B-cell lymphoma [Recovered/Resolved]
  - Drug intolerance [Unknown]
  - Tumour associated fever [Recovered/Resolved]
  - Product use in unapproved indication [Unknown]

NARRATIVE: CASE EVENT DATE: 20160126
